FAERS Safety Report 4824959-3 (Version None)
Quarter: 2005Q4

REPORT INFORMATION
  Report Type: 
  Country: None (occurrence: None)
  Receive Date: 20051109
  Receipt Date: 20051109
  Transmission Date: 20060501
  Serious: Yes (Death)
  Sender: FDA-Public Use
  Company Number: None

PATIENT
  Sex: Female
  Weight: 73.9363 kg

DRUGS (9)
  1. ZYPREXA [Suspect]
     Indication: ANXIETY
     Dosage: 2.5 MG    ONCE DAILY   PO
     Route: 048
     Dates: start: 20051102, end: 20051104
  2. ZYPREXA [Suspect]
     Indication: DEPRESSION
     Dosage: 2.5 MG    ONCE DAILY   PO
     Route: 048
     Dates: start: 20051102, end: 20051104
  3. SINGULAIR [Concomitant]
  4. LEXAPRO [Concomitant]
  5. CLARINEX [Concomitant]
  6. TOPROL-XL [Concomitant]
  7. ACTOS [Concomitant]
  8. CRESTOR [Concomitant]
  9. GLUCOTROL XL [Concomitant]

REACTIONS (2)
  - DYSPNOEA [None]
  - RESPIRATORY ARREST [None]
